FAERS Safety Report 7263693-X (Version None)
Quarter: 2011Q1

REPORT INFORMATION
  Report Type: 
  Country: None (occurrence: None)
  Receive Date: 20110130
  Receipt Date: 20101214
  Transmission Date: 20110831
  Serious: No
  Sender: FDA-Public Use
  Company Number: US-ABBOTT-10P-163-0692016-00

PATIENT
  Sex: Male
  Weight: 108.96 kg

DRUGS (1)
  1. HUMIRA [Suspect]
     Indication: PYODERMA GANGRENOSUM
     Dates: start: 20100701

REACTIONS (3)
  - PRURITUS [None]
  - SKIN EXFOLIATION [None]
  - SKIN BURNING SENSATION [None]
